FAERS Safety Report 7037688-5 (Version None)
Quarter: 2010Q4

REPORT INFORMATION
  Report Type: 
  Country: None (occurrence: None)
  Receive Date: 20101011
  Receipt Date: 20101001
  Transmission Date: 20110411
  Serious: Yes (Other)
  Sender: FDA-Public Use
  Company Number: FR-ABBOTT-10P-056-0668983-00

PATIENT
  Sex: Male
  Weight: 70 kg

DRUGS (1)
  1. VERCYTE [Suspect]
     Indication: POLYCYTHAEMIA VERA
     Dosage: 1 G 5 DAYS A WEEK
     Dates: start: 20000101

REACTIONS (2)
  - PANCYTOPENIA [None]
  - REFRACTORY ANAEMIA WITH AN EXCESS OF BLASTS [None]
